FAERS Safety Report 16434008 (Version 1)
Quarter: 2019Q2

REPORT INFORMATION
  Report Type: Spontaneous
  Country: FR (occurrence: FR)
  Receive Date: 20190614
  Receipt Date: 20190614
  Transmission Date: 20190711
  Serious: Yes (Hospitalization)
  Sender: FDA-Public Use
  Company Number: FR-TEVA-2019-FR-1062426

PATIENT
  Age: 86 Year
  Sex: Female

DRUGS (9)
  1. KARDEGIC [Concomitant]
     Active Substance: ASPIRIN DL-LYSINE
  2. STRESAM, GELULE [Suspect]
     Active Substance: ETIFOXINE HYDROCHLORIDE
     Indication: DEPRESSION
     Dosage: 50MG
     Route: 048
     Dates: end: 201411
  3. AMLOR [Concomitant]
     Active Substance: AMLODIPINE BESYLATE
  4. NASONEX [Concomitant]
     Active Substance: MOMETASONE FUROATE
  5. VENLAFAXINE [Suspect]
     Active Substance: VENLAFAXINE HYDROCHLORIDE
     Indication: DEPRESSION
     Dosage: 37.5MG
     Route: 048
     Dates: end: 201411
  6. STRUCTOFLEX [Concomitant]
     Active Substance: GLUCOSAMINE
  7. KLIPAL CODEINE 600 MG/50 MG, COMPRIME [Suspect]
     Active Substance: ACETAMINOPHEN\CODEINE PHOSPHATE
     Indication: PAIN
     Dosage: 1 DOSAGE FORMS
     Route: 048
     Dates: end: 201411
  8. NOCTAMIDE 2 MG, COMPRIME SECABLE [Suspect]
     Active Substance: LORMETAZEPAM
     Indication: INSOMNIA
     Dosage: 1 DOSAGE FORM
     Route: 048
     Dates: end: 201411
  9. CRESTOR [Concomitant]
     Active Substance: ROSUVASTATIN CALCIUM

REACTIONS (3)
  - Persecutory delusion [Recovered/Resolved]
  - Fall [Recovered/Resolved]
  - Cognitive disorder [Recovered/Resolved]

NARRATIVE: CASE EVENT DATE: 20141120
